FAERS Safety Report 24270887 (Version 1)
Quarter: 2024Q3

REPORT INFORMATION
  Report Type: Spontaneous
  Country: JP (occurrence: JP)
  Receive Date: 20240831
  Receipt Date: 20240831
  Transmission Date: 20241017
  Serious: Yes (Life-Threatening, Hospitalization)
  Sender: MACLEODS
  Company Number: JP-MLMSERVICE-20240813-PI156937-00328-1

PATIENT

DRUGS (1)
  1. VALSARTAN [Suspect]
     Active Substance: VALSARTAN
     Indication: Product used for unknown indication
     Dosage: 22 VALSARTAN 40 MG TABLETS
     Route: 064

REACTIONS (5)
  - Renal tubular necrosis [Recovered/Resolved]
  - Respiratory distress [Recovered/Resolved]
  - Renal failure [Recovered/Resolved]
  - Overdose [Recovered/Resolved]
  - Foetal exposure during pregnancy [Unknown]
